FAERS Safety Report 17278000 (Version 1)
Quarter: 2020Q1

REPORT INFORMATION
  Report Type: Spontaneous
  Country: US (occurrence: US)
  Receive Date: 20191227
  Receipt Date: 20191227
  Transmission Date: 20200409
  Serious: Yes (Hospitalization)
  Sender: FDA-Public Use
  Company Number: None

PATIENT
  Age: 60 Year
  Sex: Female
  Weight: 44.9 kg

DRUGS (2)
  1. ERIBULIN 1.932MG [Suspect]
     Active Substance: ERIBULIN
     Indication: BREAST CANCER METASTATIC
     Dosage: ?          OTHER DOSE:1.4MG/M2;OTHER FREQUENCY:D1 AND D8 OF 21 DA;?
     Route: 042
     Dates: start: 20190104, end: 20191115
  2. DURVALUMAB 1,120MG [Suspect]
     Active Substance: DURVALUMAB
     Indication: BREAST CANCER METASTATIC
     Route: 042
     Dates: start: 20190104, end: 20191115

REACTIONS (5)
  - Disease progression [None]
  - Gastrointestinal haemorrhage [None]
  - Gastric ulcer haemorrhage [None]
  - Haemoglobin decreased [None]
  - Ascites [None]

NARRATIVE: CASE EVENT DATE: 20191223
